FAERS Safety Report 6296829-8 (Version None)
Quarter: 2009Q3

REPORT INFORMATION
  Report Type: 
  Country: None (occurrence: None)
  Receive Date: 20090804
  Receipt Date: 20090729
  Transmission Date: 20100115
  Serious: Yes (Other)
  Sender: FDA-Public Use
  Company Number: PHHY2009NL06409

PATIENT
  Sex: Female
  Weight: 118 kg

DRUGS (5)
  1. NEORAL [Suspect]
     Indication: NEPHROTIC SYNDROME
     Dosage: 125 MG DIVIDED OVER TWO APPLICATIONS
     Route: 048
     Dates: start: 20030101
  2. APROVEL [Concomitant]
     Dosage: 150 MG
     Route: 048
  3. SELEKTINE [Concomitant]
     Dosage: 40 MG
     Route: 048
  4. FUROSEMIDE [Concomitant]
     Dosage: 40 MG
     Route: 048
  5. PRILOSEC [Concomitant]
     Dosage: 20 MG
     Route: 048

REACTIONS (3)
  - CAESAREAN SECTION [None]
  - DRUG EXPOSURE DURING PREGNANCY [None]
  - PREMATURE LABOUR [None]
